FAERS Safety Report 21405006 (Version 1)
Quarter: 2022Q4

REPORT INFORMATION
  Report Type: Spontaneous
  Country: US (occurrence: US)
  Receive Date: 20221004
  Receipt Date: 20221004
  Transmission Date: 20230113
  Serious: Yes (Hospitalization)
  Sender: FDA-Public Use
  Company Number: US-JNJFOC-20220959788

PATIENT
  Age: 75 Year
  Sex: Female
  Weight: 75 kg

DRUGS (2)
  1. SELEXIPAG [Suspect]
     Active Substance: SELEXIPAG
     Indication: Pulmonary hypertension
     Route: 048
  2. OFEV [Concomitant]
     Active Substance: NINTEDANIB

REACTIONS (1)
  - Respiratory disorder [Unknown]

NARRATIVE: CASE EVENT DATE: 20220901
